FAERS Safety Report 23639565 (Version 1)
Quarter: 2024Q1

REPORT INFORMATION
  Report Type: Spontaneous
  Country: US (occurrence: US)
  Receive Date: 20240316
  Receipt Date: 20240316
  Transmission Date: 20240409
  Serious: No
  Sender: FDA-Public Use
  Company Number: US-JNJFOC-20240333749

PATIENT

DRUGS (1)
  1. STELARA [Suspect]
     Active Substance: USTEKINUMAB
     Indication: Colitis ulcerative
     Dosage: TELARA IV DOSE 21 WEEKS AGO
     Route: 058
     Dates: start: 2023

REACTIONS (1)
  - Inappropriate schedule of product administration [Unknown]
